FAERS Safety Report 10050099 (Version 1)
Quarter: 2014Q1

REPORT INFORMATION
  Report Type: Spontaneous
  Country: US (occurrence: None)
  Receive Date: 20140328
  Receipt Date: 20140328
  Transmission Date: 20141002
  Serious: Yes (Death)
  Sender: FDA-Public Use
  Company Number: AUR-APL-2014-03790

PATIENT
  Age: 53 Year
  Sex: Male

DRUGS (3)
  1. VENLAFAXINE [Suspect]
     Indication: PRODUCT USED FOR UNKNOWN INDICATION
  2. BUPROPION [Suspect]
     Indication: PRODUCT USED FOR UNKNOWN INDICATION
     Route: 048
  3. ETHANOL [Suspect]
     Indication: PRODUCT USED FOR UNKNOWN INDICATION

REACTIONS (11)
  - Completed suicide [None]
  - Toxicity to various agents [None]
  - Nausea [None]
  - Status epilepticus [None]
  - Hypotension [None]
  - Hypoxic-ischaemic encephalopathy [None]
  - Hypoxic-ischaemic encephalopathy [None]
  - Fluid overload [None]
  - Pulmonary oedema [None]
  - Ascites [None]
  - Pleural effusion [None]
